FAERS Safety Report 10928276 (Version 1)
Quarter: 2015Q1

REPORT INFORMATION
  Report Type: Spontaneous
  Country: US (occurrence: None)
  Receive Date: 20150317
  Receipt Date: 20150317
  Transmission Date: 20150721
  Serious: Yes (Other)
  Sender: FDA-Public Use
  Company Number: None

PATIENT
  Age: 66 Year
  Sex: Female

DRUGS (4)
  1. VENLAFAXINE ER [Suspect]
     Active Substance: VENLAFAXINE HYDROCHLORIDE
     Indication: ANXIETY
     Dosage: 1 CAPSULE
     Route: 048
     Dates: start: 20150120, end: 20150316
  2. EFFEXOR XR [Concomitant]
     Active Substance: VENLAFAXINE HYDROCHLORIDE
  3. VENLAFAXINE ER [Suspect]
     Active Substance: VENLAFAXINE HYDROCHLORIDE
     Indication: DEPRESSION
     Dosage: 1 CAPSULE
     Route: 048
     Dates: start: 20150120, end: 20150316
  4. KLONOPIN [Concomitant]
     Active Substance: CLONAZEPAM

REACTIONS (8)
  - Headache [None]
  - Depression [None]
  - Asthenia [None]
  - Insomnia [None]
  - Apathy [None]
  - Nausea [None]
  - Decreased appetite [None]
  - Anhedonia [None]

NARRATIVE: CASE EVENT DATE: 20150202
